FAERS Safety Report 8969006 (Version 1)
Quarter: 2012Q4

REPORT INFORMATION
  Report Type: 
  Country: US (occurrence: US)
  Receive Date: 20121218
  Receipt Date: 20121218
  Transmission Date: 20130627
  Serious: No
  Sender: FDA-Public Use
  Company Number: US-009507513-1212USA005862

PATIENT
  Age: 77 Year
  Sex: Female

DRUGS (2)
  1. DULERA [Suspect]
     Indication: ASTHMA
     Dosage: 200/5 mg bid
     Route: 055
  2. ALBUTEROL [Concomitant]

REACTIONS (1)
  - Dyspnoea [Unknown]
